FAERS Safety Report 10527113 (Version 1)
Quarter: 2014Q4

REPORT INFORMATION
  Report Type: Spontaneous
  Country: US (occurrence: None)
  Receive Date: 20141016
  Receipt Date: 20141016
  Transmission Date: 20150528
  Serious: Yes (Hospitalization, Other)
  Sender: FDA-Public Use
  Company Number: None

PATIENT
  Age: 13 Year
  Sex: Male
  Weight: 40.82 kg

DRUGS (2)
  1. HYDROXYCHLOROQUINE [Suspect]
     Active Substance: HYDROXYCHLOROQUINE
     Indication: SKIN DISORDER
     Dosage: 1.5
     Route: 048
  2. PREDNISONE. [Suspect]
     Active Substance: PREDNISONE
     Indication: INFLAMMATION
     Dosage: 2 PILLS, 1/2 A DAY
     Route: 048

REACTIONS (13)
  - Erythema [None]
  - Swelling face [None]
  - Weight increased [None]
  - Chromaturia [None]
  - Skin discolouration [None]
  - Alopecia [None]
  - Renal failure [None]
  - Inflammation [None]
  - Trichorrhexis [None]
  - Treatment noncompliance [None]
  - Blood pressure increased [None]
  - Skin exfoliation [None]
  - Acne [None]

NARRATIVE: CASE EVENT DATE: 20131008
